FAERS Safety Report 7775188-5 (Version None)
Quarter: 2011Q3

REPORT INFORMATION
  Report Type: 
  Country: None (occurrence: None)
  Receive Date: 20110923
  Receipt Date: 20110921
  Transmission Date: 20111222
  Serious: No
  Sender: FDA-Public Use
  Company Number: US-PFIZER INC-2011225194

PATIENT
  Sex: Female
  Weight: 68 kg

DRUGS (9)
  1. LIPITOR [Suspect]
     Indication: BLOOD CHOLESTEROL INCREASED
     Dosage: 40 MG, 1X/DAY
     Route: 048
     Dates: start: 20090101, end: 20110901
  2. LISINOPRIL [Concomitant]
     Indication: HYPERTENSION
     Dosage: UNK
  3. NITROGLYCERIN [Concomitant]
     Indication: CHEST PAIN
     Dosage: UNK
  4. ATENOLOL [Concomitant]
     Indication: HYPERTENSION
     Dosage: UNK
  5. DIAZEPAM [Concomitant]
     Indication: ANXIETY
  6. GERITOL [Concomitant]
     Indication: SLUGGISHNESS
     Dosage: UNK
  7. DIAZEPAM [Concomitant]
     Indication: NERVOUS SYSTEM DISORDER
     Dosage: UNK
  8. PLAVIX [Concomitant]
     Indication: CARDIOVASCULAR DISORDER
     Dosage: UNK
  9. ASPIRIN [Concomitant]
     Indication: CARDIAC DISORDER
     Dosage: UNK

REACTIONS (1)
  - OEDEMA PERIPHERAL [None]
